FAERS Safety Report 13885135 (Version 1)
Quarter: 2017Q3

REPORT INFORMATION
  Report Type: Spontaneous
  Country: US (occurrence: US)
  Receive Date: 20170821
  Receipt Date: 20170821
  Transmission Date: 20171127
  Serious: No
  Sender: FDA-Public Use
  Company Number: US-009507513-1708USA008661

PATIENT
  Sex: Female

DRUGS (1)
  1. MAXALT [Suspect]
     Active Substance: RIZATRIPTAN BENZOATE
     Dosage: UNK

REACTIONS (1)
  - Nausea [Unknown]
